FAERS Safety Report 11742688 (Version 1)
Quarter: 2015Q4

REPORT INFORMATION
  Report Type: Spontaneous
  Country: US (occurrence: None)
  Receive Date: 20151113
  Receipt Date: 20151113
  Transmission Date: 20160304
  Serious: Yes (Hospitalization)
  Sender: FDA-Public Use
  Company Number: None

PATIENT
  Age: 19 Year
  Sex: Female
  Weight: 50 kg

DRUGS (6)
  1. NABUMETONE. [Concomitant]
     Active Substance: NABUMETONE
  2. CYCLOBENZABRINE [Concomitant]
  3. CLONAZEPAM. [Concomitant]
     Active Substance: CLONAZEPAM
  4. LURASIDONE [Suspect]
     Active Substance: LURASIDONE
     Route: 048
     Dates: start: 20151009, end: 20151102
  5. OXYCODONE [Concomitant]
     Active Substance: OXYCODONE
  6. SUMATRIPTAN. [Concomitant]
     Active Substance: SUMATRIPTAN

REACTIONS (3)
  - Hypoaesthesia [None]
  - Contusion [None]
  - Peripheral swelling [None]

NARRATIVE: CASE EVENT DATE: 20151102
